FAERS Safety Report 12570516 (Version 1)
Quarter: 2016Q3

REPORT INFORMATION
  Report Type: Spontaneous
  Country: US (occurrence: US)
  Receive Date: 20160719
  Receipt Date: 20160719
  Transmission Date: 20161109
  Serious: No
  Sender: FDA-Public Use
  Company Number: US-JUBILANT HOLLISTERSTIER LLC-1055247

PATIENT

DRUGS (5)
  1. STANDARDIZED MITE, DERMATOPHAGOIDES FARINAE, SCRATCH OR BULK, 30000 AU PER ML [Suspect]
     Active Substance: DERMATOPHAGOIDES FARINAE
     Indication: HYPERSENSITIVITY
     Route: 050
  2. STANDARDIZED MITE, DERMATOPHAGOIDES PTERONYSSINUS, SCRATCH OR BULK, 30000 AU PER ML [Suspect]
     Active Substance: DERMATOPHAGOIDES PTERONYSSINUS
     Route: 050
  3. ANIMAL ALLERGENS, AP DOG HAIR AND DANDER CANIS SPP [Suspect]
     Active Substance: CANIS LUPUS FAMILIARIS DANDER\CANIS LUPUS FAMILIARIS HAIR
     Route: 050
  4. ALTERNARIA [Suspect]
     Active Substance: ALTERNARIA ALTERNATA
     Route: 050
  5. HELMINTHOSPORIUM [Suspect]
     Active Substance: COCHLIOBOLUS SATIVUS
     Route: 050

REACTIONS (1)
  - Local reaction [None]
